FAERS Safety Report 12673772 (Version 3)
Quarter: 2016Q4

REPORT INFORMATION
  Report Type: Spontaneous
  Country: CN (occurrence: CN)
  Receive Date: 20160822
  Receipt Date: 20161014
  Transmission Date: 20170207
  Serious: Yes (Death)
  Sender: FDA-Public Use
  Company Number: CN-FRESENIUS KABI-FK201605629

PATIENT
  Sex: Male

DRUGS (5)
  1. VOLUVEN [Suspect]
     Active Substance: HYDROXYETHYL STARCH 130/0.4
     Indication: FLUID REPLACEMENT
     Route: 041
     Dates: start: 20160805, end: 20160806
  2. POLYGELINE FENGYUAN ANHUI [Concomitant]
     Dates: start: 20160805
  3. FURBIPROFEN AXETIL [Concomitant]
  4. LANSOPRAZOLE. [Concomitant]
     Active Substance: LANSOPRAZOLE
  5. ANTIBIOTICS [Suspect]
     Active Substance: UNSPECIFIED INGREDIENT
     Indication: PRODUCT USED FOR UNKNOWN INDICATION
     Route: 065

REACTIONS (7)
  - Renal injury [Fatal]
  - Rash [Unknown]
  - Multiple organ dysfunction syndrome [Fatal]
  - Body temperature increased [Fatal]
  - Heart rate increased [Fatal]
  - Lung infection [Fatal]
  - Platelet count decreased [Fatal]

NARRATIVE: CASE EVENT DATE: 20160806
